FAERS Safety Report 6634868-5 (Version None)
Quarter: 2010Q1

REPORT INFORMATION
  Report Type: 
  Country: None (occurrence: None)
  Receive Date: 20100315
  Receipt Date: 20100305
  Transmission Date: 20100710
  Serious: Yes (Other)
  Sender: FDA-Public Use
  Company Number: BR-PFIZER INC-2010028513

PATIENT
  Age: 49 Year
  Sex: Female
  Weight: 60 kg

DRUGS (6)
  1. XALATAN [Suspect]
     Indication: INTRAOCULAR PRESSURE INCREASED
     Dosage: 3 UG, 1X/DAY
     Route: 047
     Dates: start: 20050101, end: 20100201
  2. EUTHYROX [Concomitant]
     Indication: HORMONE REPLACEMENT THERAPY
     Dosage: UNK
  3. CHLOROQUINE [Concomitant]
     Indication: RHEUMATOID ARTHRITIS
     Dosage: UNK
  4. ARAVA [Concomitant]
     Indication: RHEUMATOID ARTHRITIS
     Dosage: UNK
  5. PANTOPRAZOL [Concomitant]
     Indication: GASTRITIS
     Dosage: UNK
  6. CALCIUM [Concomitant]
     Indication: MINERAL SUPPLEMENTATION
     Dosage: UNK

REACTIONS (4)
  - AGEUSIA [None]
  - ANOSMIA [None]
  - BRONCHIECTASIS [None]
  - SINUSITIS [None]
